FAERS Safety Report 4760934-5 (Version None)
Quarter: 2005Q3

REPORT INFORMATION
  Report Type: 
  Country: None (occurrence: None)
  Receive Date: 20050901
  Receipt Date: 20050822
  Transmission Date: 20060218
  Serious: Yes (Hospitalization)
  Sender: FDA-Public Use
  Company Number: 2005US000925

PATIENT
  Age: 60 Year
  Sex: Male

DRUGS (6)
  1. PROGRAF [Suspect]
     Indication: PROPHYLAXIS AGAINST TRANSPLANT REJECTION
     Dosage: 4.00 MG, BID, ORAL
     Route: 048
     Dates: start: 20050502
  2. MYCOPHENOLATE MOFETIL (MYCOPHENOLATE MOFETIL) [Suspect]
     Indication: PROPHYLAXIS AGAINST TRANSPLANT REJECTION
     Dosage: 1000.00 MG, BID, ORAL
     Route: 048
     Dates: start: 20050502
  3. PREDNISONE [Suspect]
     Indication: PROPHYLAXIS AGAINST TRANSPLANT REJECTION
     Dosage: 10.00 MG, UID/QD, ORAL
     Route: 048
     Dates: start: 20050504
  4. IMIPENEM (IMIPENEM) [Concomitant]
  5. METRONIDAZOLE [Concomitant]
  6. PHENYTOIN [Concomitant]

REACTIONS (2)
  - ATRIAL FIBRILLATION [None]
  - BACTERAEMIA [None]
